FAERS Safety Report 13576927 (Version 2)
Quarter: 2017Q2

REPORT INFORMATION
  Report Type: Spontaneous
  Country: IN (occurrence: IN)
  Receive Date: 20170524
  Receipt Date: 20170606
  Transmission Date: 20170830
  Serious: Yes (Death, Hospitalization)
  Sender: FDA-Public Use
  Company Number: IN-TEVA-771749ISR

PATIENT
  Age: 60 Year
  Sex: Male
  Weight: 42 kg

DRUGS (15)
  1. AMOX-CLAV [Suspect]
     Active Substance: AMOXICILLIN\CLAVULANATE POTASSIUM
     Indication: PULMONARY TUBERCULOSIS
     Route: 048
     Dates: start: 20161128
  2. METFORMIN [Concomitant]
     Active Substance: METFORMIN HYDROCHLORIDE
     Dates: start: 20161017, end: 20170412
  3. ETHAMBUTOL HYDROCHLORIDE. [Concomitant]
     Active Substance: ETHAMBUTOL HYDROCHLORIDE
  4. RIFAMPICIN [Concomitant]
     Active Substance: RIFAMPIN
  5. PYRAZINAMIDE. [Concomitant]
     Active Substance: PYRAZINAMIDE
  6. CLOFAZIMINE [Suspect]
     Active Substance: CLOFAZIMINE
     Indication: PULMONARY TUBERCULOSIS
     Dosage: 100 MILLIGRAM DAILY;
     Route: 048
     Dates: start: 20160727
  7. ETHIONAMIDE [Suspect]
     Active Substance: ETHIONAMIDE
     Indication: PULMONARY TUBERCULOSIS
     Dosage: 500 MILLIGRAM DAILY;
     Route: 048
     Dates: start: 20160727
  8. DELAMANID [Suspect]
     Active Substance: DELAMANID
     Indication: PULMONARY TUBERCULOSIS
     Dosage: 200 MILLIGRAM DAILY;
     Route: 048
     Dates: start: 20161006, end: 20170414
  9. PYRIDOXINE [Concomitant]
     Active Substance: PYRIDOXINE
     Dates: start: 20160906
  10. ISONIAZID. [Concomitant]
     Active Substance: ISONIAZID
  11. LINEZOLID. [Suspect]
     Active Substance: LINEZOLID
     Indication: PULMONARY TUBERCULOSIS
     Dosage: 600 MILLIGRAM DAILY;
     Route: 048
     Dates: start: 20160727, end: 20170424
  12. PREGABALIN. [Concomitant]
     Active Substance: PREGABALIN
     Dates: start: 20161003
  13. ENALAPRIL [Concomitant]
     Active Substance: ENALAPRIL
     Dates: start: 20170102, end: 20170412
  14. METOPROLOL. [Concomitant]
     Active Substance: METOPROLOL
     Dates: start: 20170102
  15. IMIPENEM [Suspect]
     Active Substance: IMIPENEM
     Indication: PULMONARY TUBERCULOSIS
     Dosage: 1000 GRAM DAILY;
     Route: 042
     Dates: start: 20161003

REACTIONS (4)
  - Death [Fatal]
  - Blood creatinine increased [Unknown]
  - Candida infection [Not Recovered/Not Resolved]
  - Weight decreased [Unknown]

NARRATIVE: CASE EVENT DATE: 20170405
